FAERS Safety Report 13825616 (Version 2)
Quarter: 2017Q3

REPORT INFORMATION
  Report Type: Spontaneous
  Country: TR (occurrence: TR)
  Receive Date: 20170802
  Receipt Date: 20170822
  Transmission Date: 20171127
  Serious: Yes (Hospitalization, Other)
  Sender: FDA-Public Use
  Company Number: TR-BAYER-2017-122328

PATIENT
  Age: 26 Year
  Sex: Female
  Weight: 54 kg

DRUGS (3)
  1. PARACETAMOL [Concomitant]
     Active Substance: ACETAMINOPHEN
  2. BETACONNECT [Suspect]
     Active Substance: DEVICE
     Dosage: UNK
  3. BETAFERON [Suspect]
     Active Substance: INTERFERON BETA-1B
     Indication: MULTIPLE SCLEROSIS
     Dosage: 1 ML, QOD
     Route: 058

REACTIONS (10)
  - Febrile convulsion [Recovered/Resolved]
  - Seizure [Recovered/Resolved]
  - Injection site induration [Not Recovered/Not Resolved]
  - Febrile convulsion [Recovered/Resolved]
  - Febrile convulsion [Recovered/Resolved]
  - Infection [Recovered/Resolved]
  - Injection site discolouration [Not Recovered/Not Resolved]
  - Diplopia [Recovered/Resolved]
  - Influenza like illness [None]
  - Gait disturbance [Recovered/Resolved]

NARRATIVE: CASE EVENT DATE: 201407
